FAERS Safety Report 17911351 (Version 1)
Quarter: 2020Q2

REPORT INFORMATION
  Report Type: Spontaneous
  Country: DE (occurrence: DE)
  Receive Date: 20200618
  Receipt Date: 20200618
  Transmission Date: 20200714
  Serious: Yes (Other)
  Sender: FDA-Public Use
  Company Number: DE-PFIZER INC-2020234297

PATIENT
  Age: 11 Year
  Sex: Male

DRUGS (9)
  1. HYDROCORTISONE SODIUM SUCCINATE [Suspect]
     Active Substance: HYDROCORTISONE SODIUM SUCCINATE
     Indication: HYPOPARATHYROIDISM
     Dosage: 15 MG/M2, DAILY
  2. CALCIUM [Concomitant]
     Active Substance: CALCIUM
     Indication: HYPOPARATHYROIDISM
     Dosage: UNK
  3. CALCITRIOL. [Concomitant]
     Active Substance: CALCITRIOL
     Indication: ADDISON^S DISEASE
  4. FLUDROCORTISONE [Concomitant]
     Active Substance: FLUDROCORTISONE
     Indication: HYPOPARATHYROIDISM
     Dosage: 0.1 MG, DAILY
  5. CALCITRIOL. [Concomitant]
     Active Substance: CALCITRIOL
     Indication: HYPOPARATHYROIDISM
     Dosage: UNK
  6. CALCIUM [Concomitant]
     Active Substance: CALCIUM
     Indication: ADDISON^S DISEASE
  7. HYDROCORTISONE SODIUM SUCCINATE [Interacting]
     Active Substance: HYDROCORTISONE SODIUM SUCCINATE
     Indication: ADDISON^S DISEASE
  8. LIQUORICE [GLYCYRRHIZA GLABRA] [Interacting]
     Active Substance: GLYCYRRHIZA GLABRA\HERBALS
     Indication: ADDISON^S DISEASE
     Dosage: UNK (300-400 G) (APPROXIMATELY 600-800 MG GLYCYRRHIZIC ACID)
  9. FLUDROCORTISONE [Concomitant]
     Active Substance: FLUDROCORTISONE
     Indication: ADDISON^S DISEASE

REACTIONS (3)
  - Drug interaction [Unknown]
  - Apparent mineralocorticoid excess [Recovered/Resolved]
  - Growth retardation [Recovering/Resolving]
